FAERS Safety Report 19474612 (Version 1)
Quarter: 2021Q2

REPORT INFORMATION
  Report Type: Spontaneous
  Country: IN (occurrence: IN)
  Receive Date: 20210630
  Receipt Date: 20210630
  Transmission Date: 20210717
  Serious: No
  Sender: FDA-Public Use
  Company Number: IN-LUPIN LIMITED-2021-03184

PATIENT
  Age: 65 Year
  Sex: Female

DRUGS (6)
  1. AKT?4 [Suspect]
     Active Substance: ETHAMBUTOL HYDROCHLORIDE\ISONIAZID\PYRAZINAMIDE\RIFAMYCIN
     Dosage: UNK UNK, TID, 3 TABLETS AT A TIME IN THE EVENING
     Route: 065
     Dates: start: 2021
  2. MET XL [Concomitant]
     Indication: BLOOD PRESSURE ABNORMAL
     Dosage: UNK, EXTENDED RELEASE 25
     Route: 065
  3. LIV 52 [ACHILLEA MILLEFOLIUM;AYURVEDIC PREPARATION NOS;CAPPARIS SPINOS [Concomitant]
     Indication: PRODUCT USED FOR UNKNOWN INDICATION
     Dosage: UNK
     Route: 065
  4. LEVOFLOXACIN. [Concomitant]
     Active Substance: LEVOFLOXACIN
     Indication: PRODUCT USED FOR UNKNOWN INDICATION
     Dosage: UNK
     Route: 042
  5. L?CIN FILM C.TABS 750 MG [Suspect]
     Active Substance: LEVOFLOXACIN
     Indication: PRODUCT USED FOR UNKNOWN INDICATION
     Dosage: UNK
     Route: 065
  6. AKT?4 [Suspect]
     Active Substance: ETHAMBUTOL HYDROCHLORIDE\ISONIAZID\PYRAZINAMIDE\RIFAMYCIN
     Indication: EXTRAPULMONARY TUBERCULOSIS
     Dosage: UNK UNK, QID, 1 RED COLORED CAPSULE ON EMPTY STOMACH IN THE MORNING, 1 TABLET AFTER BREAKFAST, 1 TAB
     Route: 065
     Dates: start: 20210217, end: 20210224

REACTIONS (10)
  - Blood pressure increased [Not Recovered/Not Resolved]
  - Anxiety [Not Recovered/Not Resolved]
  - Hot flush [Not Recovered/Not Resolved]
  - Restlessness [Not Recovered/Not Resolved]
  - Malaise [Not Recovered/Not Resolved]
  - Calcium deficiency [Not Recovered/Not Resolved]
  - Dyspepsia [Not Recovered/Not Resolved]
  - Vomiting [Recovered/Resolved]
  - Body temperature increased [Recovering/Resolving]
  - Hyperchlorhydria [Not Recovered/Not Resolved]

NARRATIVE: CASE EVENT DATE: 2021
